FAERS Safety Report 17407158 (Version 1)
Quarter: 2020Q1

REPORT INFORMATION
  Report Type: Other
  Country: BW (occurrence: BW)
  Receive Date: 20200212
  Receipt Date: 20200212
  Transmission Date: 20200409
  Serious: Yes (Death, Congenital Anomaly, Other)
  Sender: FDA-Public Use
  Company Number: BW-MACLEODS PHARMACEUTICALS US LTD-MAC2020025048

PATIENT

DRUGS (4)
  1. ABACAVIR. [Suspect]
     Active Substance: ABACAVIR
     Indication: PRODUCT USED FOR UNKNOWN INDICATION
     Dosage: UNK, 1 COURSE DURING FIRST TRIMESTER, PRIOR TO CONCEPTION
     Route: 064
  2. TIVICAY [Suspect]
     Active Substance: DOLUTEGRAVIR SODIUM
     Indication: PRODUCT USED FOR UNKNOWN INDICATION
     Dosage: UNK, 1 COURSE, PRIOR TO CONCEPTION DURING FIRST TRIMESTER, STOPPED ON 22 WEEKS
     Route: 064
  3. LAMIVUDINE. [Suspect]
     Active Substance: LAMIVUDINE
     Indication: PRODUCT USED FOR UNKNOWN INDICATION
     Dosage: UNK, 1 COURSE, PRIOR TO CONCEPTION DRING FIRST TRIMESTER
     Route: 064
  4. EFAVIRENZ. [Suspect]
     Active Substance: EFAVIRENZ
     Indication: PRODUCT USED FOR UNKNOWN INDICATION
     Dosage: UNK, 1 COURSE DURING SECOND TRIMESTER, STARTED ON 22 WEEK
     Route: 064

REACTIONS (4)
  - Stillbirth [Fatal]
  - Hydrocephalus [Unknown]
  - Meningomyelocele [Unknown]
  - Foetal exposure during pregnancy [Unknown]

NARRATIVE: CASE EVENT DATE: 20181001
